FAERS Safety Report 5057368-5 (Version None)
Quarter: 2006Q3

REPORT INFORMATION
  Report Type: 
  Country: None (occurrence: None)
  Receive Date: 20060721
  Receipt Date: 20050829
  Transmission Date: 20061208
  Serious: No
  Sender: FDA-Public Use
  Company Number: US-GLAXOSMITHKLINE-A0572231A

PATIENT
  Age: 64 Year
  Sex: Female

DRUGS (6)
  1. AVANDIA [Suspect]
     Dosage: 4MG PER DAY
     Route: 048
     Dates: start: 20050829
  2. BLOOD PRESSURE MEDICATION [Concomitant]
  3. THYROID TAB [Concomitant]
  4. ANTI-CHOLESTEROL MEDICATION [Concomitant]
     Route: 065
  5. CALCIUM GLUCONATE [Concomitant]
  6. VITAMINS [Concomitant]

REACTIONS (1)
  - PALPITATIONS [None]
